FAERS Safety Report 15282991 (Version 1)
Quarter: 2018Q3

REPORT INFORMATION
  Report Type: Spontaneous
  Country: US (occurrence: US)
  Receive Date: 20180816
  Receipt Date: 20180816
  Transmission Date: 20181010
  Serious: No
  Sender: FDA-Public Use
  Company Number: US-ACCORD-067350

PATIENT
  Age: 67 Year
  Sex: Male

DRUGS (1)
  1. OLMESARTAN ACCORD [Suspect]
     Active Substance: OLMESARTAN
     Indication: HYPERTENSION
     Dosage: STRENGTH:20 MG?ONE TABLET AT BED TIME

REACTIONS (3)
  - Drug ineffective [Unknown]
  - Product substitution issue [Unknown]
  - Headache [Unknown]
